FAERS Safety Report 24459091 (Version 3)
Quarter: 2024Q4

REPORT INFORMATION
  Report Type: Spontaneous
  Country: MX (occurrence: MX)
  Receive Date: 20241018
  Receipt Date: 20241203
  Transmission Date: 20250115
  Serious: Yes (Disabling)
  Sender: ROCHE
  Company Number: MX-ROCHE-10000106334

PATIENT
  Age: 52 Year
  Sex: Female
  Weight: 60 kg

DRUGS (2)
  1. OCREVUS [Suspect]
     Active Substance: OCRELIZUMAB
     Indication: Relapsing-remitting multiple sclerosis
     Dosage: SECOND DOSE : 25/SEP/2024
     Route: 065
     Dates: start: 20240820
  2. OCREVUS [Suspect]
     Active Substance: OCRELIZUMAB
     Route: 065
     Dates: start: 20240925

REACTIONS (1)
  - Paradoxical drug reaction [Unknown]

NARRATIVE: CASE EVENT DATE: 20240925
